FAERS Safety Report 4652961-3 (Version None)
Quarter: 2005Q2

REPORT INFORMATION
  Report Type: 
  Country: None (occurrence: None)
  Receive Date: 20050503
  Receipt Date: 20050418
  Transmission Date: 20051028
  Serious: Yes (Life-Threatening, Hospitalization)
  Sender: FDA-Public Use
  Company Number: DSA_70634_2005

PATIENT
  Age: 1 Month
  Sex: Male
  Weight: 5 kg

DRUGS (5)
  1. MORPHINE [Suspect]
     Dosage: DF
  2. ROXICODONE [Suspect]
     Dosage: DF
  3. CODEINE [Suspect]
     Dosage: DF
  4. ACETAMINOPHEN [Suspect]
     Dosage: DF
  5. SIMETHICONE [Concomitant]

REACTIONS (16)
  - BODY TEMPERATURE INCREASED [None]
  - BRADYCARDIA [None]
  - CHILD ABUSE [None]
  - CRYING [None]
  - CYANOSIS [None]
  - DEPRESSED LEVEL OF CONSCIOUSNESS [None]
  - DRUG SCREEN POSITIVE [None]
  - HEART RATE INCREASED [None]
  - HYPOTONIA [None]
  - INTERCOSTAL RETRACTION [None]
  - MUSCLE RIGIDITY [None]
  - RESPIRATORY DISTRESS [None]
  - RESPIRATORY RATE INCREASED [None]
  - SOMNOLENCE [None]
  - STATUS EPILEPTICUS [None]
  - STRIDOR [None]
